FAERS Safety Report 8521265 (Version 4)
Quarter: 2013Q1

REPORT INFORMATION
  Report Type: Spontaneous
  Country: US (occurrence: US)
  Receive Date: 20120419
  Receipt Date: 20130110
  Transmission Date: 20140127
  Serious: Yes (Other)
  Sender: FDA-Public Use
  Company Number: PHHY2011US38986

PATIENT
  Sex: Female

DRUGS (17)
  1. TASIGNA [Suspect]
     Indication: CHRONIC MYELOID LEUKAEMIA
     Dosage: 300 MG, BID
     Route: 048
     Dates: start: 20101117
  2. TASIGNA [Suspect]
     Dosage: 150 MG, 4 TIMES A DAY
  3. PROMETHAZINE [Suspect]
     Dosage: 25 MG, UNK
  4. ALPRAZOLAM [Suspect]
     Dosage: 0.5 MG, UNK
  5. FLUCONAZOLE [Suspect]
     Dosage: 100 MG, UNK
  6. FAMOTIDINE [Suspect]
     Indication: GASTROINTESTINAL ULCER
     Dosage: 40 MG, TID
  7. HYDROCODONE W/ACETAMINOPHEN [Suspect]
  8. CYMBALTA [Suspect]
     Dosage: 30 MG, TID
  9. ONDANSETRON HYDROCHLORIDE [Suspect]
     Dosage: 8 MG, UNK
  10. SINGULAIR [Suspect]
     Dosage: 10 MG, QD
  11. COMBIVENT [Suspect]
  12. ALBUTEROL SULFATE [Concomitant]
  13. PREDNISONE [Concomitant]
  14. SYMBICORT [Concomitant]
  15. NEOMYCIN-POLYMYXIN B SULFATE-GRAMICIDIN [Concomitant]
  16. ALLOTYROL [Concomitant]
  17. THAM [Concomitant]

REACTIONS (16)
  - Asthma [Unknown]
  - Gastrointestinal disorder [Unknown]
  - Splenomegaly [Unknown]
  - Fibromyalgia [Unknown]
  - Rheumatoid arthritis [Unknown]
  - Hangover [Unknown]
  - Fungal infection [Unknown]
  - Ear infection [Unknown]
  - Dehydration [Unknown]
  - Nausea [Unknown]
  - Vomiting [Unknown]
  - Headache [Unknown]
  - Pyrexia [Unknown]
  - Bone pain [Unknown]
  - Weight decreased [Unknown]
  - Neuropathy peripheral [Unknown]
